FAERS Safety Report 6535605-5 (Version None)
Quarter: 2010Q1

REPORT INFORMATION
  Report Type: 
  Country: None (occurrence: None)
  Receive Date: 20100113
  Receipt Date: 20100107
  Transmission Date: 20100710
  Serious: Yes (Hospitalization)
  Sender: FDA-Public Use
  Company Number: DE-BAYER-201010987GPV

PATIENT
  Age: 71 Year
  Sex: Female

DRUGS (2)
  1. CIPRO [Suspect]
     Indication: LEUKOPENIA
     Dosage: TOTAL DAILY DOSE: 500 MG  UNIT DOSE: 500 MG
     Route: 048
     Dates: start: 20090922, end: 20090928
  2. AMITRIPTYLIN-NEURAXHARM (AMITRIPTYLINE HYDROCHLORIDE) [Suspect]
     Indication: RHEUMATOID ARTHRITIS
     Dosage: TOTAL DAILY DOSE: 100 MG  UNIT DOSE: 100 MG
     Route: 048
     Dates: start: 20090610, end: 20090928

REACTIONS (5)
  - ABDOMINAL DISCOMFORT [None]
  - DEHYDRATION [None]
  - DIZZINESS [None]
  - SKIN DISORDER [None]
  - VOMITING [None]
